FAERS Safety Report 11131438 (Version 2)
Quarter: 2015Q2

REPORT INFORMATION
  Report Type: Report from Study
  Country: BR (occurrence: BR)
  Receive Date: 20150522
  Receipt Date: 20150603
  Transmission Date: 20150821
  Serious: Yes (Other)
  Sender: FDA-Public Use
  Company Number: PHHY2015BR059192

PATIENT
  Age: 80 Year
  Sex: Female

DRUGS (3)
  1. PROPRANOLOL [Concomitant]
     Active Substance: PROPRANOLOL\PROPRANOLOL HYDROCHLORIDE
     Indication: HYPERTENSION
     Dosage: 1 DF, QD
     Route: 048
  2. SULFASALAZINE. [Concomitant]
     Active Substance: SULFASALAZINE
     Indication: CROHN^S DISEASE
     Dosage: 1 DF, QD
     Route: 048
  3. ACLASTA [Suspect]
     Active Substance: ZOLEDRONIC ACID
     Indication: OSTEOPOROSIS
     Dosage: 5 MG, (1 AMPOULE PER YEAR)
     Route: 042
     Dates: start: 2012

REACTIONS (5)
  - Fall [Unknown]
  - Impaired healing [Unknown]
  - Depression [Recovering/Resolving]
  - Osteoporosis [Unknown]
  - Fractured coccyx [Recovered/Resolved]

NARRATIVE: CASE EVENT DATE: 201412
